FAERS Safety Report 8168691-X (Version None)
Quarter: 2012Q1

REPORT INFORMATION
  Report Type: 
  Country: None (occurrence: None)
  Receive Date: 20120227
  Receipt Date: 20120221
  Transmission Date: 20120608
  Serious: Yes (Other)
  Sender: FDA-Public Use
  Company Number: PHEH2012US004064

PATIENT
  Sex: Female

DRUGS (1)
  1. GILENYA [Suspect]
     Indication: MULTIPLE SCLEROSIS
     Dosage: 0.5 MG, QD
     Route: 048
     Dates: start: 20120110, end: 20120130

REACTIONS (5)
  - EXTRASYSTOLES [None]
  - PALPITATIONS [None]
  - HEART RATE IRREGULAR [None]
  - HYPERTENSION [None]
  - ARRHYTHMIA [None]
